FAERS Safety Report 4422693-5 (Version None)
Quarter: 2004Q3

REPORT INFORMATION
  Report Type: 
  Country: None (occurrence: None)
  Receive Date: 20040713
  Receipt Date: 20030814
  Transmission Date: 20050211
  Serious: No
  Sender: FDA-Public Use
  Company Number: PHEH2003US06190

PATIENT
  Age: 2 Year
  Sex: Female
  Weight: 12.5 kg

DRUGS (1)
  1. ELIDEL [Suspect]
     Indication: ECZEMA
     Dosage: QD, TOPICAL
     Route: 061
     Dates: start: 20030706, end: 20030715

REACTIONS (4)
  - APPLICATION SITE ERYTHEMA [None]
  - COUGH [None]
  - LACRIMATION INCREASED [None]
  - NASAL CONGESTION [None]
